FAERS Safety Report 15170618 (Version 3)
Quarter: 2022Q1

REPORT INFORMATION
  Report Type: Spontaneous
  Country: NL (occurrence: NL)
  Receive Date: 20180720
  Receipt Date: 20220105
  Transmission Date: 20220423
  Serious: Yes (Other)
  Sender: FDA-Public Use
  Company Number: NL-AUROBINDO-AUR-APL-2018-036951

PATIENT
  Age: 73 Year
  Sex: Female

DRUGS (4)
  1. EZETIMIBE [Suspect]
     Active Substance: EZETIMIBE
     Indication: Product used for unknown indication
     Dosage: 20 MILLIGRAM, ONCE A DAY
     Route: 065
  2. EZETIMIBE [Suspect]
     Active Substance: EZETIMIBE
     Dosage: 10 MILLIGRAM, ONCE A DAY
     Route: 065
  3. PRAVASTATIN [Suspect]
     Active Substance: PRAVASTATIN
     Indication: Hypertension
     Dosage: 20 MILLIGRAM, ONCE A DAY
     Route: 065
  4. PRAVASTATIN [Suspect]
     Active Substance: PRAVASTATIN
     Dosage: 10 MILLIGRAM, ONCE A DAY
     Route: 065

REACTIONS (3)
  - Ligament rupture [Unknown]
  - Myalgia [Unknown]
  - Muscle rupture [Unknown]
